FAERS Safety Report 14935112 (Version 1)
Quarter: 2018Q2

REPORT INFORMATION
  Report Type: Spontaneous
  Country: US (occurrence: US)
  Receive Date: 20180524
  Receipt Date: 20180524
  Transmission Date: 20180711
  Serious: Yes (Hospitalization)
  Sender: FDA-Public Use
  Company Number: US-TEVA-2018-US-895028

PATIENT
  Age: 53 Year
  Sex: Male

DRUGS (1)
  1. ESTRADIOL. [Suspect]
     Active Substance: ESTRADIOL
     Indication: HORMONE REPLACEMENT THERAPY
     Route: 065

REACTIONS (4)
  - Cerebral infarction [Recovering/Resolving]
  - Cerebral venous thrombosis [Recovered/Resolved]
  - Quadrantanopia [Recovering/Resolving]
  - Generalised tonic-clonic seizure [Unknown]
